FAERS Safety Report 11121977 (Version 1)
Quarter: 2015Q2

REPORT INFORMATION
  Report Type: Spontaneous
  Country: US (occurrence: US)
  Receive Date: 20150519
  Receipt Date: 20150519
  Transmission Date: 20150821
  Serious: No
  Sender: FDA-Public Use
  Company Number: US-TARO-2014TAR00288

PATIENT
  Sex: Male

DRUGS (1)
  1. NYSTATIN + TRIAMCINOLONE ACETONIDE OINTMENT [Suspect]
     Active Substance: NYSTATIN\TRIAMCINOLONE ACETONIDE
     Dosage: UNK
     Dates: start: 2004

REACTIONS (2)
  - Product substitution issue [Unknown]
  - Drug effect decreased [Unknown]
